FAERS Safety Report 4805371-X (Version None)
Quarter: 2005Q4

REPORT INFORMATION
  Report Type: 
  Country: None (occurrence: None)
  Receive Date: 20051018
  Receipt Date: 20051005
  Transmission Date: 20060501
  Serious: Yes (Hospitalization)
  Sender: FDA-Public Use
  Company Number: 2005-BP-18116RO

PATIENT
  Age: 13 Year
  Sex: Male

DRUGS (2)
  1. AZATHIOPRINE [Suspect]
     Indication: WEGENER'S GRANULOMATOSIS
  2. PREDNISONE [Suspect]
     Indication: WEGENER'S GRANULOMATOSIS

REACTIONS (8)
  - CONDITION AGGRAVATED [None]
  - DRUG INEFFECTIVE [None]
  - MORBID THOUGHTS [None]
  - OBSESSIVE-COMPULSIVE DISORDER [None]
  - PANIC ATTACK [None]
  - SLEEP DISORDER [None]
  - SUICIDAL IDEATION [None]
  - VASCULITIS [None]
